FAERS Safety Report 10063621 (Version 2)
Quarter: 2014Q2

REPORT INFORMATION
  Report Type: Spontaneous
  Country: US (occurrence: US)
  Receive Date: 20140407
  Receipt Date: 20140507
  Transmission Date: 20141212
  Serious: Yes (Other)
  Sender: FDA-Public Use
  Company Number: US-KOWA-2014S1000371

PATIENT
  Age: 74 Year
  Sex: Male

DRUGS (3)
  1. LIVALO [Suspect]
     Route: 048
  2. ALTACE [Concomitant]
  3. NIACIN [Concomitant]
     Dates: start: 2010

REACTIONS (1)
  - Maculopathy [Unknown]
